FAERS Safety Report 6190039-0 (Version None)
Quarter: 2009Q2

REPORT INFORMATION
  Report Type: 
  Country: None (occurrence: None)
  Receive Date: 20090512
  Receipt Date: 20090512
  Transmission Date: 20091009
  Serious: Yes (Life-Threatening, Hospitalization)
  Sender: FDA-Public Use
  Company Number: None

PATIENT
  Age: 52 Year
  Sex: Male
  Weight: 102.0593 kg

DRUGS (2)
  1. TRAMADOL HCL [Suspect]
     Indication: BACK PAIN
     Dosage: 50 MG 1 OR 2 TABLETS EVE PO
     Route: 048
     Dates: start: 20090424, end: 20090428
  2. TRAMADOL HCL [Suspect]
     Indication: PAIN
     Dosage: 50 MG 1 OR 2 TABLETS EVE PO
     Route: 048
     Dates: start: 20090424, end: 20090428

REACTIONS (2)
  - BLOOD SODIUM ABNORMAL [None]
  - DRUG INEFFECTIVE [None]
